FAERS Safety Report 14461319 (Version 7)
Quarter: 2018Q1

REPORT INFORMATION
  Report Type: Report from Study
  Country: IN (occurrence: IN)
  Receive Date: 20180130
  Receipt Date: 20180330
  Transmission Date: 20180509
  Serious: Yes (Hospitalization, Other)
  Sender: FDA-Public Use
  Company Number: IN-PFIZER INC-2018038979

PATIENT
  Age: 46 Year
  Sex: Female
  Weight: 69.5 kg

DRUGS (19)
  1. MANNITOL. [Suspect]
     Active Substance: MANNITOL
     Indication: INTRACRANIAL PRESSURE INCREASED
     Dosage: 100 ML, 3X/DAY
     Route: 042
     Dates: start: 20180110, end: 20180112
  2. SYSFOL [Concomitant]
     Dosage: UNK
     Dates: start: 20160416, end: 20180110
  3. LEVETIRACETAM. [Suspect]
     Active Substance: LEVETIRACETAM
     Dosage: 500 MG, UNK
     Route: 042
     Dates: start: 20180119
  4. OROFER XT Z [Concomitant]
     Dosage: UNK
     Dates: start: 20160416
  5. ITOPRIDE HYDROCHLORIDE [Concomitant]
     Active Substance: ITOPRIDE HYDROCHLORIDE
     Dosage: UNK
     Dates: start: 20180103
  6. PARACETAMOL [Suspect]
     Active Substance: ACETAMINOPHEN
     Dosage: 650 MG, 3X/DAY
     Dates: start: 20180115, end: 20180119
  7. RACIPER [Suspect]
     Active Substance: ESOMEPRAZOLE MAGNESIUM
     Dosage: 20 MG, 1X/DAY
     Route: 042
     Dates: start: 20180116, end: 20180119
  8. RACIPER [Suspect]
     Active Substance: ESOMEPRAZOLE MAGNESIUM
     Dosage: 20 MG, 2X/DAY (CONTINUE FOR 21 DAYS)
     Route: 042
     Dates: start: 20180119
  9. PANTOCID [Concomitant]
     Dosage: UNK
     Dates: start: 20180103
  10. FOLITRAX [Concomitant]
     Dosage: UNK
     Dates: start: 20180103, end: 20180110
  11. ZOFER [Suspect]
     Active Substance: ONDANSETRON HYDROCHLORIDE
     Indication: VOMITING
     Dosage: 8 MG, 2X/DAY
     Route: 042
     Dates: start: 20180110, end: 20180115
  12. MANNITOL. [Suspect]
     Active Substance: MANNITOL
     Dosage: 100 ML, 2X/DAY
     Route: 042
     Dates: start: 20180113, end: 20180119
  13. HCQS [Concomitant]
     Dosage: UNK
     Dates: start: 20160416, end: 20180110
  14. LEVETIRACETAM. [Suspect]
     Active Substance: LEVETIRACETAM
     Dosage: 500 MG, 2X/DAY
     Route: 042
     Dates: start: 20180115, end: 20180119
  15. LEVETIRACETAM. [Suspect]
     Active Substance: LEVETIRACETAM
     Dosage: 500 MG, 2X/DAY
     Route: 042
     Dates: start: 20180110, end: 20180114
  16. RANTAC [Concomitant]
     Active Substance: RANITIDINE HYDROCHLORIDE
     Dosage: UNK
     Dates: start: 20160416
  17. METHOTREXATE SODIUM. [Suspect]
     Active Substance: METHOTREXATE SODIUM
     Indication: RHEUMATOID ARTHRITIS
     Dosage: 15 MG,1 IN 1 W (ONCE IN EVERY WEEK)
     Route: 048
     Dates: start: 20171214, end: 20180110
  18. PARACETAMOL [Suspect]
     Active Substance: ACETAMINOPHEN
     Indication: HEADACHE
     Dosage: 1 G, AS NEEDED
     Dates: start: 20180101, end: 20180115
  19. RACIPER [Suspect]
     Active Substance: ESOMEPRAZOLE MAGNESIUM
     Indication: GASTRITIS
     Dosage: 40 MG, 2X/DAY
     Route: 042
     Dates: start: 20180110, end: 20180115

REACTIONS (1)
  - Malignant glioma [Not Recovered/Not Resolved]

NARRATIVE: CASE EVENT DATE: 20180110
